FAERS Safety Report 7108240-8 (Version None)
Quarter: 2010Q4

REPORT INFORMATION
  Report Type: 
  Country: None (occurrence: None)
  Receive Date: 20101117
  Receipt Date: 20101102
  Transmission Date: 20110411
  Serious: Yes (Hospitalization)
  Sender: FDA-Public Use
  Company Number: US-ELI_LILLY_AND_COMPANY-US201011003494

PATIENT
  Age: 76 Year
  Sex: Male

DRUGS (3)
  1. PRASUGREL HYDROCHLORIDE [Suspect]
     Indication: ACUTE CORONARY SYNDROME
     Dosage: 60 MG, DAILY (1/D)
     Route: 048
     Dates: start: 20100619
  2. CLOPIDEGREL [Concomitant]
     Dosage: 75 MG, UNK
     Dates: start: 20100618
  3. ASPIRIN [Concomitant]
     Dosage: 325 MG, UNK

REACTIONS (10)
  - ABDOMINAL PAIN [None]
  - ACCELERATED IDIOVENTRICULAR RHYTHM [None]
  - CORONARY ARTERY STENOSIS [None]
  - DYSPNOEA [None]
  - ELECTROMECHANICAL DISSOCIATION [None]
  - HAEMATURIA [None]
  - MEDICAL DEVICE COMPLICATION [None]
  - RESPIRATORY DISORDER [None]
  - THROMBOSIS IN DEVICE [None]
  - VENTRICULAR FIBRILLATION [None]
